FAERS Safety Report 25031072 (Version 1)
Quarter: 2025Q1

REPORT INFORMATION
  Report Type: Spontaneous
  Country: US (occurrence: None)
  Receive Date: 20250228
  Receipt Date: 20250228
  Transmission Date: 20250409
  Serious: Yes (Other)
  Sender: FDA-CTU
  Company Number: None

PATIENT
  Sex: Female
  Weight: 56.25 kg

DRUGS (1)
  1. MONSELS SOLUTION [Suspect]
     Active Substance: FERRIC SUBSULFATE

REACTIONS (4)
  - Application site exfoliation [None]
  - Application site vesicles [None]
  - Vaginal wall congestion [None]
  - Rash [None]
